FAERS Safety Report 10750867 (Version 1)
Quarter: 2015Q1

REPORT INFORMATION
  Report Type: Spontaneous
  Country: US (occurrence: None)
  Receive Date: 20150128
  Receipt Date: 20150128
  Transmission Date: 20150721
  Serious: Yes (Hospitalization)
  Sender: FDA-Public Use
  Company Number: HYP201501-000006

PATIENT
  Age: 24 Year
  Sex: Female
  Weight: 41.2 kg

DRUGS (8)
  1. IBUPROFEN (IBUPROFEN) [Concomitant]
     Active Substance: IBUPROFEN
  2. OMEPRAZOLE (OMEPRAZOLE) [Concomitant]
     Active Substance: OMEPRAZOLE
  3. POLYETHYLENE GLYCOL (MARCROGOL) [Concomitant]
  4. TRIAMCINOLONE (TRIAMCINOLONE) [Concomitant]
  5. HYDROXYZINE HCL (HYDROXYZINE HYDROCHLORIDE) [Concomitant]
  6. RAVICTI [Suspect]
     Active Substance: GLYCEROL PHENYLBUTYRATE
     Indication: UREA CYCLE ENZYME DEFICIENCY
     Dates: start: 201402
  7. TIZANIDINE (TIZANIDINE) [Concomitant]
     Active Substance: TIZANIDINE
  8. SARNA (CAMPHOR, MENTHOL, PHENOL) LOTION (EXCEPT LOTION FOR EYE) [Concomitant]

REACTIONS (6)
  - Hyperammonaemia [None]
  - Skin infection [None]
  - Fall [None]
  - Catheter site infection [None]
  - Device expulsion [None]
  - Drug dose omission [None]

NARRATIVE: CASE EVENT DATE: 20150106
